FAERS Safety Report 24451570 (Version 1)
Quarter: 2024Q4

REPORT INFORMATION
  Report Type: Report from Study
  Country: ZA (occurrence: ZA)
  Receive Date: 20241017
  Receipt Date: 20241017
  Transmission Date: 20250114
  Serious: Yes (Hospitalization)
  Sender: ABBVIE
  Company Number: ZA-ABBOTT-2024A-1389744

PATIENT
  Age: 64 Year
  Sex: Female

DRUGS (12)
  1. FENOFIBRATE [Suspect]
     Active Substance: FENOFIBRATE
     Indication: Blood cholesterol abnormal
     Dosage: 200 MG TAKE ONE CAPSULE ONCE DAILY WITH A MEAL
     Route: 048
  2. PICOPREP [Concomitant]
     Active Substance: ANHYDROUS CITRIC ACID\MAGNESIUM OXIDE\SODIUM PICOSULFATE
     Indication: Product used for unknown indication
     Dosage: DISSOLVE EACH SACHET IN A GLASS OF WARM WATER THEN SPIN
     Route: 048
  3. GLUCOPHAGE XR [Concomitant]
     Active Substance: METFORMIN HYDROCHLORIDE
     Indication: Diabetes mellitus
     Dosage: 1000 MG TAKE ONE TABLET AT NIGHT
     Route: 048
  4. ERGOCALCIFEROL [Concomitant]
     Active Substance: ERGOCALCIFEROL
     Indication: Product used for unknown indication
     Dosage: 50000 IU TAKE ONE TABLET ONCE A WEEK
     Route: 048
  5. ETIFOXINE [Concomitant]
     Active Substance: ETIFOXINE
     Indication: Stress
     Dosage: 50 MG TAKE ONE CAPSULE THREE TIMES A DAY
     Route: 048
  6. Pantocid [Concomitant]
     Indication: Dyspepsia
     Dosage: 40 MG TAKE ONE TABLET IN THE MORNING
     Route: 048
  7. PERINDOPRIL ERBUMINE [Concomitant]
     Active Substance: PERINDOPRIL ERBUMINE
     Indication: Cardiac disorder
     Dosage: 8 MG TAKE ONE TABLET ONCE DAILY
     Route: 048
  8. Allergex [Concomitant]
     Indication: Hypersensitivity
     Dosage: 4 MG USE AS PER PACKAGE LEAFLET
     Route: 048
  9. Lipogen [Concomitant]
     Indication: Blood cholesterol abnormal
     Dosage: 40 MG TAKE ONE TABLET AT NIGHT
     Route: 048
  10. Xyleve [Concomitant]
     Indication: Hypersensitivity
     Dosage: 5 MG AS DIRECTED
     Route: 048
  11. LEVOCETIRIZINE DIHYDROCHLORIDE [Concomitant]
     Active Substance: LEVOCETIRIZINE DIHYDROCHLORIDE
     Indication: Hypersensitivity
     Dosage: 5 MG USE AS PER PACKAGE LEAFLET
     Route: 048
  12. ESCITALOPRAM [Concomitant]
     Active Substance: ESCITALOPRAM OXALATE
     Indication: Depression
     Dosage: 20 MG TAKE ONE TABLET ONCE DAILY
     Route: 048

REACTIONS (6)
  - Hepatic cancer [Unknown]
  - Eating disorder [Unknown]
  - Gastrointestinal disorder [Unknown]
  - Diarrhoea [Unknown]
  - Pancreatic carcinoma [Unknown]
  - Nausea [Unknown]
